FAERS Safety Report 5032173-4 (Version None)
Quarter: 2006Q2

REPORT INFORMATION
  Report Type: 
  Country: None (occurrence: None)
  Receive Date: 20060619
  Receipt Date: 20060605
  Transmission Date: 20061013
  Serious: Yes (Other)
  Sender: FDA-Public Use
  Company Number: HQWYE873919APR06

PATIENT
  Age: 74 Year
  Sex: Female

DRUGS (3)
  1. EFFEXOR XR [Suspect]
     Indication: ANXIETY
     Dosage: 37.5 MG 1X PER 1 DAY ORAL
     Route: 048
     Dates: start: 20050805, end: 20060110
  2. VITAMIN D [Concomitant]
  3. SENOKOT [Concomitant]

REACTIONS (1)
  - PARKINSONISM [None]
